FAERS Safety Report 4284609-4 (Version None)
Quarter: 2004Q1

REPORT INFORMATION
  Report Type: 
  Country: None (occurrence: None)
  Receive Date: 20040130
  Receipt Date: 20040114
  Transmission Date: 20041129
  Serious: Yes (Death, Life-Threatening)
  Sender: FDA-Public Use
  Company Number: DSA_23658_2003

PATIENT
  Age: 12 Month
  Sex: Female
  Weight: 4.9986 kg

DRUGS (9)
  1. ENALAPRIL MALEATE [Suspect]
     Indication: DECREASED VENTRICULAR AFTERLOAD
     Dosage: 67 MCG TID PO
     Route: 048
     Dates: start: 20030304, end: 20030306
  2. ENALAPRIL MALEATE [Suspect]
     Indication: DECREASED VENTRICULAR AFTERLOAD
     Dosage: 33 MCG TID PO
     Route: 048
     Dates: start: 20030301, end: 20030304
  3. ANTIBIOTICS-RESISTANT LACTIC ACID BACTERIAE [Concomitant]
  4. BENZBROMARONE [Concomitant]
  5. DOPAMINE HYDROCHLORIDE [Concomitant]
  6. FUROSEMIDE [Concomitant]
  7. LEVOTHYROXINE SODIUM [Concomitant]
  8. MILRINONE [Concomitant]
  9. TORSEMIDE [Concomitant]

REACTIONS (20)
  - ALANINE AMINOTRANSFERASE INCREASED [None]
  - ASPARTATE AMINOTRANSFERASE INCREASED [None]
  - BLOOD BILIRUBIN INCREASED [None]
  - BLOOD CHLORIDE DECREASED [None]
  - BLOOD CREATININE DECREASED [None]
  - BLOOD LACTATE DEHYDROGENASE INCREASED [None]
  - BLOOD POTASSIUM INCREASED [None]
  - BLOOD PRESSURE DECREASED [None]
  - BLOOD SODIUM DECREASED [None]
  - BLOOD UREA INCREASED [None]
  - BLOOD URINE [None]
  - GAMMA-GLUTAMYLTRANSFERASE INCREASED [None]
  - GLUCOSE URINE PRESENT [None]
  - HAEMATOCRIT INCREASED [None]
  - HAEMODIALYSIS [None]
  - HAEMOGLOBIN DECREASED [None]
  - HEART RATE INCREASED [None]
  - PROTEIN TOTAL DECREASED [None]
  - RENAL FAILURE ACUTE [None]
  - SHOCK HAEMORRHAGIC [None]
